FAERS Safety Report 4584909-4 (Version None)
Quarter: 2005Q1

REPORT INFORMATION
  Report Type: 
  Country: None (occurrence: None)
  Receive Date: 20050217
  Receipt Date: 20041110
  Transmission Date: 20050727
  Serious: No
  Sender: FDA-Public Use
  Company Number: US-GLAXOSMITHKLINE-A0533444A

PATIENT
  Sex: Female

DRUGS (5)
  1. WELLBUTRIN XL [Suspect]
     Indication: DEPRESSION
     Dosage: 300MG PER DAY
     Route: 048
  2. EFFEXOR [Concomitant]
  3. RESTORIL [Concomitant]
  4. ATIVAN [Concomitant]
  5. IBUPROFEN [Concomitant]

REACTIONS (1)
  - DRUG INEFFECTIVE [None]
